FAERS Safety Report 19837710 (Version 3)
Quarter: 2021Q4

REPORT INFORMATION
  Report Type: Report from Study
  Country: CA (occurrence: CA)
  Receive Date: 20210916
  Receipt Date: 20211217
  Transmission Date: 20220303
  Serious: Yes (Other)
  Sender: FDA-Public Use
  Company Number: CA-BRISTOL-MYERS SQUIBB COMPANY-BMS-2021-091937

PATIENT
  Age: 9 Year
  Sex: Female

DRUGS (4)
  1. NIVOLUMAB [Suspect]
     Active Substance: NIVOLUMAB
     Indication: Glioblastoma multiforme
     Dosage: 210 MILLIGRAM, Q3WK
     Route: 065
     Dates: start: 20210721, end: 20210909
  2. YERVOY [Suspect]
     Active Substance: IPILIMUMAB
     Indication: Glioblastoma multiforme
     Dosage: 210 MILLIGRAM, Q3WK
     Route: 065
     Dates: start: 20210721, end: 20210909
  3. DECADRON [Concomitant]
     Active Substance: DEXAMETHASONE
     Indication: Product used for unknown indication
     Dosage: UNK
     Route: 065
  4. TOPAMAX [Concomitant]
     Active Substance: TOPIRAMATE
     Indication: Product used for unknown indication
     Dosage: UNK
     Route: 065

REACTIONS (3)
  - Hepatitis [Unknown]
  - Sarcomatosis [Unknown]
  - Intentional product use issue [Unknown]

NARRATIVE: CASE EVENT DATE: 20210721
